FAERS Safety Report 4372334-0 (Version None)
Quarter: 2004Q2

REPORT INFORMATION
  Report Type: 
  Country: None (occurrence: None)
  Receive Date: 20040526
  Receipt Date: 20040514
  Transmission Date: 20050107
  Serious: Yes (Death, Other)
  Sender: FDA-Public Use
  Company Number: 2002110610FR

PATIENT
  Age: 63 Year
  Sex: Female

DRUGS (10)
  1. CAMPTOSAR [Suspect]
     Indication: COLON CANCER
     Dosage: 345 MG, CYCLIC, IV
     Route: 042
     Dates: start: 20020321, end: 20020516
  2. FLUOROURACIL [Suspect]
     Indication: COLON CANCER
     Dosage: 1500 MG, CYCLIC, IV BOLUS; 2300 MG, CYCLIC, IV
     Route: 040
     Dates: start: 20020321, end: 20020517
  3. FLUOROURACIL [Suspect]
     Indication: COLON CANCER
     Dosage: 1500 MG, CYCLIC, IV BOLUS; 2300 MG, CYCLIC, IV
     Route: 040
     Dates: start: 20020321, end: 20020517
  4. LEUCOVORIN CALCIUM [Suspect]
     Indication: COLON CANCER
     Dosage: 7690 MG, CYCLIC IV
     Route: 042
     Dates: start: 20020321, end: 20020517
  5. COZAAR [Concomitant]
  6. ATHYMIL [Concomitant]
  7. ANAFRANIL [Concomitant]
  8. SERESTA [Concomitant]
  9. STILNOX (ZOLPIDEM) [Concomitant]
  10. LEVOTHYROX (LEVOTHYROXINE SODIUM) [Concomitant]

REACTIONS (11)
  - BUNDLE BRANCH BLOCK [None]
  - CHOLINERGIC SYNDROME [None]
  - DIZZINESS [None]
  - DYSPNOEA [None]
  - FALL [None]
  - LOSS OF CONSCIOUSNESS [None]
  - MALAISE [None]
  - NAUSEA [None]
  - ORTHOSTATIC HYPOTENSION [None]
  - PO2 DECREASED [None]
  - PULMONARY EMBOLISM [None]
